FAERS Safety Report 7465964-0 (Version None)
Quarter: 2011Q2

REPORT INFORMATION
  Report Type: 
  Country: None (occurrence: None)
  Receive Date: 20110509
  Receipt Date: 20100518
  Transmission Date: 20111010
  Serious: No
  Sender: FDA-Public Use
  Company Number: US-ALEXION-A201000572

PATIENT
  Sex: Male
  Weight: 76.644 kg

DRUGS (2)
  1. SOLIRIS [Suspect]
     Indication: PAROXYSMAL NOCTURNAL HAEMOGLOBINURIA
     Dosage: UNK
     Route: 042
     Dates: start: 20100101
  2. MULTI-VITAMINS [Concomitant]
     Dosage: UNK
     Route: 048

REACTIONS (1)
  - PLATELET COUNT DECREASED [None]
